FAERS Safety Report 12523753 (Version 1)
Quarter: 2016Q3

REPORT INFORMATION
  Report Type: Spontaneous
  Country: FR (occurrence: FR)
  Receive Date: 20160704
  Receipt Date: 20160704
  Transmission Date: 20161109
  Serious: Yes (Other)
  Sender: FDA-Public Use
  Company Number: FR-009507513-1606FRA014143

PATIENT
  Age: 40 Year
  Sex: Male

DRUGS (2)
  1. ESMERON [Suspect]
     Active Substance: ROCURONIUM BROMIDE
     Indication: OTORHINOLARYNGOLOGICAL SURGERY
     Dosage: UNK UNK, UNKNOWN
     Route: 065
     Dates: start: 2014
  2. BRIDION [Suspect]
     Active Substance: SUGAMMADEX
     Indication: OTORHINOLARYNGOLOGICAL SURGERY
     Dosage: UNK UNK, UNKNOWN
     Route: 065
     Dates: start: 2014

REACTIONS (2)
  - Condition aggravated [Unknown]
  - Anaphylactic reaction [Unknown]

NARRATIVE: CASE EVENT DATE: 2014
